FAERS Safety Report 8314942-8 (Version None)
Quarter: 2012Q2

REPORT INFORMATION
  Report Type: 
  Country: None (occurrence: None)
  Receive Date: 20120426
  Receipt Date: 20120419
  Transmission Date: 20120825
  Serious: Yes (Other)
  Sender: FDA-Public Use
  Company Number: JP-B.I. PHARMACEUTICALS,INC./RIDGEFIELD-2012-BP-09412YA

PATIENT
  Sex: Male

DRUGS (2)
  1. VESICARE [Suspect]
     Route: 048
  2. TAMSULOSIN HCL [Suspect]
     Route: 048

REACTIONS (1)
  - AGEUSIA [None]
